FAERS Safety Report 7114354-9 (Version None)
Quarter: 2010Q4

REPORT INFORMATION
  Report Type: 
  Country: None (occurrence: None)
  Receive Date: 20101119
  Receipt Date: 20101108
  Transmission Date: 20110411
  Serious: Yes (Other)
  Sender: FDA-Public Use
  Company Number: US-ELI_LILLY_AND_COMPANY-US201011002823

PATIENT
  Sex: Female

DRUGS (2)
  1. HUMALOG [Suspect]
     Indication: DIABETES MELLITUS
     Dosage: UNK, AS NEEDED
     Dates: start: 20100301
  2. LANTUS [Concomitant]
     Dosage: 20 U, DAILY (1/D)

REACTIONS (3)
  - BLINDNESS UNILATERAL [None]
  - CATARACT [None]
  - VISUAL ACUITY REDUCED [None]
